FAERS Safety Report 7808151-6 (Version None)
Quarter: 2011Q4

REPORT INFORMATION
  Report Type: 
  Country: None (occurrence: None)
  Receive Date: 20111011
  Receipt Date: 20110927
  Transmission Date: 20120403
  Serious: Yes (Disabling)
  Sender: FDA-Public Use
  Company Number: BR-ROCHE-781056

PATIENT
  Sex: Female

DRUGS (14)
  1. SCAFLAM [Concomitant]
  2. OMEPRAZOLE [Concomitant]
     Dosage: ONE TABLET IN THE MORNING AND ONE TABLET IN THE NIGHT.
  3. CORTISONE ACETATE [Concomitant]
  4. ENALAPRIL MALEATE [Concomitant]
  5. ACTEMRA [Suspect]
     Indication: RHEUMATOID ARTHRITIS
     Route: 065
  6. TRAMADOL HYDROCHLORIDE AND ACETAMINOPHEN [Suspect]
     Indication: ARTHRALGIA
     Route: 065
     Dates: start: 20110101, end: 20110101
  7. PREDNISONE [Concomitant]
     Indication: RHEUMATOID ARTHRITIS
     Route: 048
  8. PREDNISONE [Concomitant]
     Dosage: DOSE INCREASED
     Route: 048
  9. FOLIC ACID [Concomitant]
  10. ROXICAM [Concomitant]
  11. METHOTREXATE [Concomitant]
  12. NEXIUM [Concomitant]
  13. MABTHERA [Suspect]
     Indication: RHEUMATOID ARTHRITIS
     Dosage: DOSE: 100MG/10 ML
     Route: 065
     Dates: start: 20090401, end: 20090401
  14. ENALAPRIL MALEATE [Concomitant]

REACTIONS (15)
  - PAIN [None]
  - STOMATITIS [None]
  - PAIN IN EXTREMITY [None]
  - WEIGHT DECREASED [None]
  - RHEUMATOID ARTHRITIS [None]
  - GASTRIC DISORDER [None]
  - GAIT DISTURBANCE [None]
  - DYSPEPSIA [None]
  - DRY MOUTH [None]
  - JOINT INJURY [None]
  - ABDOMINAL PAIN UPPER [None]
  - DRUG INEFFECTIVE [None]
  - ARTHRALGIA [None]
  - ARTHRITIS [None]
  - INFLUENZA [None]
